FAERS Safety Report 21536649 (Version 2)
Quarter: 2024Q1

REPORT INFORMATION
  Report Type: Spontaneous
  Country: US (occurrence: US)
  Receive Date: 20221101
  Receipt Date: 20240220
  Transmission Date: 20240410
  Serious: No
  Sender: FDA-Public Use
  Company Number: US-PFIZER INC-202201264904

PATIENT
  Age: 66 Year
  Sex: Male
  Weight: 115.65 kg

DRUGS (2)
  1. LORBRENA [Suspect]
     Active Substance: LORLATINIB
     Dosage: 50 UG, 1X/DAY
     Dates: start: 202202
  2. LEXAPRO [Concomitant]
     Active Substance: ESCITALOPRAM OXALATE
     Dosage: 20 MG, 1X/DAY

REACTIONS (1)
  - Personality change [Not Recovered/Not Resolved]

NARRATIVE: CASE EVENT DATE: 20220201
